FAERS Safety Report 14569156 (Version 1)
Quarter: 2018Q1

REPORT INFORMATION
  Report Type: Not Available
  Country: US (occurrence: CN)
  Receive Date: 20180223
  Receipt Date: 20180223
  Transmission Date: 20180509
  Serious: Yes (Hospitalization)
  Sender: FDA-Public Use
  Company Number: US-FOUNDATIONCONSUMERHC-2018-CN-000020

PATIENT
  Age: 34 Year
  Sex: Female
  Weight: 55 kg

DRUGS (1)
  1. LEVONORGESTREL (UNSPECIFIED) [Suspect]
     Active Substance: LEVONORGESTREL
     Dosage: 1.5 MG
     Dates: start: 20130616, end: 20130616

REACTIONS (2)
  - Nausea [Unknown]
  - Vomiting [Unknown]

NARRATIVE: CASE EVENT DATE: 201306
